FAERS Safety Report 10258968 (Version 1)
Quarter: 2014Q2

REPORT INFORMATION
  Report Type: Spontaneous
  Country: FR (occurrence: FR)
  Receive Date: 20140625
  Receipt Date: 20140625
  Transmission Date: 20141212
  Serious: Yes (Life-Threatening, Hospitalization)
  Sender: FDA-Public Use
  Company Number: FR-MYLANLABS-2014S1014593

PATIENT
  Age: 72 Year
  Sex: Male

DRUGS (2)
  1. DABIGATRAN ETEXILATE [Suspect]
     Indication: ATRIAL FIBRILLATION
     Route: 065
  2. AMIODARONE [Interacting]
     Indication: ATRIAL FIBRILLATION
     Dosage: 200 MG/DAY
     Route: 065

REACTIONS (3)
  - Epistaxis [Unknown]
  - Respiratory distress [Unknown]
  - Drug interaction [Unknown]
